FAERS Safety Report 9950319 (Version 4)
Quarter: 2014Q2

REPORT INFORMATION
  Report Type: Report from Study
  Country: DE (occurrence: DE)
  Receive Date: 20140304
  Receipt Date: 20140410
  Transmission Date: 20141212
  Serious: Yes (Hospitalization, Other)
  Sender: FDA-Public Use
  Company Number: PHHY2014DE022818

PATIENT
  Sex: Female
  Weight: 58 kg

DRUGS (8)
  1. AFINITOR [Suspect]
     Indication: BREAST CANCER METASTATIC
     Dosage: 10 MG, QD
     Route: 048
     Dates: start: 20131216, end: 20140110
  2. EXEMESTANE [Concomitant]
     Indication: BREAST CANCER METASTATIC
     Dosage: 25 MG, QD
     Route: 048
     Dates: start: 20131216, end: 20140226
  3. OXYCODONE [Concomitant]
     Dosage: 10 MG, QD
     Dates: start: 2013
  4. L-THYROXIN [Concomitant]
     Dates: start: 2013
  5. TORASEMIDE [Concomitant]
     Dosage: 0.5 DF, QD
     Dates: start: 20140218
  6. ZOLPIDEM [Concomitant]
     Dosage: 10 MG, QD
     Dates: start: 20140115
  7. NOVAMINSULFON [Concomitant]
     Dosage: 500 MG AS NEEDED
     Dates: start: 20130513
  8. TEPILTA [Concomitant]
     Dosage: 10 ML AS NEEDED
     Dates: start: 20140115

REACTIONS (3)
  - Hepatotoxicity [Not Recovered/Not Resolved]
  - Monoparesis [Not Recovered/Not Resolved]
  - Metastases to meninges [Recovered/Resolved with Sequelae]
